FAERS Safety Report 5746391-0 (Version None)
Quarter: 2008Q2

REPORT INFORMATION
  Report Type: 
  Country: None (occurrence: None)
  Receive Date: 20080522
  Receipt Date: 20080515
  Transmission Date: 20081010
  Serious: Yes (Life-Threatening, Hospitalization)
  Sender: FDA-Public Use
  Company Number: AE-AMGEN-UK277951

PATIENT
  Age: 60 Year
  Sex: Female

DRUGS (4)
  1. NEULASTIM [Suspect]
     Indication: CHEMOTHERAPY
     Route: 065
  2. BEVACIZUMAB [Suspect]
     Route: 065
  3. GEMCITABINE [Concomitant]
     Route: 065
  4. DOCETAXEL [Concomitant]
     Route: 065

REACTIONS (2)
  - DIARRHOEA [None]
  - NEUTROPENIA [None]
